FAERS Safety Report 17622908 (Version 2)
Quarter: 2020Q2

REPORT INFORMATION
  Report Type: Spontaneous
  Country: US (occurrence: US)
  Receive Date: 20200403
  Receipt Date: 20200409
  Transmission Date: 20200713
  Serious: No
  Sender: FDA-Public Use
  Company Number: US-PFIZER INC-2020137816

PATIENT
  Age: 88 Year
  Sex: Female

DRUGS (2)
  1. LYRICA [Suspect]
     Active Substance: PREGABALIN
     Dosage: UNK, THREE A DAY (MORNING, NOON, AND NIGHT)
  2. LYRICA [Suspect]
     Active Substance: PREGABALIN
     Dosage: UNK, ONE A DAY

REACTIONS (6)
  - Tremor [Unknown]
  - Muscle twitching [Unknown]
  - Intentional product use issue [Unknown]
  - Pyrexia [Unknown]
  - Diarrhoea [Unknown]
  - Withdrawal syndrome [Unknown]
